FAERS Safety Report 4412685-4 (Version None)
Quarter: 2004Q2

REPORT INFORMATION
  Report Type: 
  Country: None (occurrence: None)
  Receive Date: 20040630
  Receipt Date: 20040309
  Transmission Date: 20050107
  Serious: No
  Sender: FDA-Public Use
  Company Number: 04P-163-0253845

PATIENT
  Age: 36 Year
  Sex: Female

DRUGS (9)
  1. HUMIRA [Suspect]
     Indication: RHEUMATOID ARTHRITIS
     Dosage: 40 MG, 1 IN 1 WK, SUBCUTANEOUS
     Route: 058
     Dates: start: 20030901, end: 20040301
  2. HYDROCODONE [Concomitant]
  3. LITHIUM [Concomitant]
  4. TRAZODONE [Concomitant]
  5. FOLIC ACID [Concomitant]
  6. AZATHIOPRINE [Concomitant]
  7. OVULEN 50 [Concomitant]
  8. METFORMIN HCL [Concomitant]
  9. SERTRALINE HYDROCHLORIDE [Concomitant]

REACTIONS (1)
  - NASOPHARYNGITIS [None]
